FAERS Safety Report 19705851 (Version 1)
Quarter: 2021Q3

REPORT INFORMATION
  Report Type: Spontaneous
  Country: CA (occurrence: CA)
  Receive Date: 20210817
  Receipt Date: 20210817
  Transmission Date: 20211014
  Serious: Yes (Other)
  Sender: FDA-Public Use
  Company Number: CA-SAMSUNG BIOEPIS-SB-2021-19217

PATIENT
  Age: 60 Year
  Sex: Female
  Weight: 74 kg

DRUGS (1)
  1. INFLIXIMAB [Suspect]
     Active Substance: INFLIXIMAB
     Indication: CROHN^S DISEASE
     Route: 042

REACTIONS (9)
  - Hyperventilation [Unknown]
  - Therapeutic response shortened [Unknown]
  - Inappropriate schedule of product administration [Unknown]
  - Off label use [Unknown]
  - Crohn^s disease [Unknown]
  - Incorrect dose administered [Unknown]
  - Faecal calprotectin increased [Unknown]
  - Therapeutic response delayed [Unknown]
  - Tooth disorder [Unknown]
